FAERS Safety Report 6215501-3 (Version None)
Quarter: 2009Q2

REPORT INFORMATION
  Report Type: 
  Country: None (occurrence: None)
  Receive Date: 20090603
  Receipt Date: 20090601
  Transmission Date: 20091009
  Serious: Yes (Hospitalization)
  Sender: FDA-Public Use
  Company Number: SP02401

PATIENT
  Age: 57 Year
  Sex: Male

DRUGS (4)
  1. COLAZAL [Suspect]
     Indication: COLITIS ULCERATIVE
     Dosage: 6.75 GM (2.25 GM, 3 IN 1 D), ORAL
     Route: 048
     Dates: start: 20090203, end: 20090413
  2. FOLIC ACID [Concomitant]
  3. PREDNISOLONE [Concomitant]
  4. MESALAMINE [Concomitant]

REACTIONS (2)
  - BRONCHIOLITIS [None]
  - ORGANISING PNEUMONIA [None]
